FAERS Safety Report 18516528 (Version 1)
Quarter: 2020Q4

REPORT INFORMATION
  Report Type: Spontaneous
  Country: US (occurrence: US)
  Receive Date: 20201117
  Receipt Date: 20201117
  Transmission Date: 20210114
  Serious: Yes (Other)
  Sender: FDA-Public Use
  Company Number: None

PATIENT
  Age: 62 Year
  Sex: Female
  Weight: 65.77 kg

DRUGS (16)
  1. PAROEX CHLORHEXIDINE GLUCONATE [Suspect]
     Active Substance: CHLORHEXIDINE GLUCONATE
     Indication: BONE GRAFT
     Dosage: ?          OTHER STRENGTH:0.12%;QUANTITY:APLY ON GAUZE FREQ;OTHER FREQUENCY:4XOR MORE DAY;?
     Route: 048
     Dates: start: 20200112, end: 20201028
  2. CYCLOBENZAPRINE. [Concomitant]
     Active Substance: CYCLOBENZAPRINE
  3. CELEBREX [Concomitant]
     Active Substance: CELECOXIB
  4. MULTIVITAMINS [Concomitant]
     Active Substance: VITAMINS
  5. SYNTHROID [Concomitant]
     Active Substance: LEVOTHYROXINE SODIUM
  6. ESTROGEN [Concomitant]
     Active Substance: ESTROGENS
  7. MOTRIN [Concomitant]
     Active Substance: IBUPROFEN
  8. VITAMIN C [Concomitant]
     Active Substance: ASCORBIC ACID
  9. PAROEX CHLORHEXIDINE GLUCONATE [Suspect]
     Active Substance: CHLORHEXIDINE GLUCONATE
     Indication: TOOTH EXTRACTION
     Dosage: ?          OTHER STRENGTH:0.12%;QUANTITY:APLY ON GAUZE FREQ;OTHER FREQUENCY:4XOR MORE DAY;?
     Route: 048
     Dates: start: 20200112, end: 20201028
  10. CLARITIN [Concomitant]
     Active Substance: LORATADINE
  11. RINVOQ [Suspect]
     Active Substance: UPADACITINIB
  12. OMEPRAZOLE. [Concomitant]
     Active Substance: OMEPRAZOLE
  13. CLARITIN-D NOS [Concomitant]
     Active Substance: LORATADINE\PSEUDOEPHEDRINE SULFATE
  14. PAROEX CHLORHEXIDINE GLUCONATE [Suspect]
     Active Substance: CHLORHEXIDINE GLUCONATE
     Indication: SCLERODERMA
     Dosage: ?          OTHER STRENGTH:0.12%;QUANTITY:APLY ON GAUZE FREQ;OTHER FREQUENCY:4XOR MORE DAY;?
     Route: 048
     Dates: start: 20200112, end: 20201028
  15. SIMVASTATIN. [Concomitant]
     Active Substance: SIMVASTATIN
  16. TYLENOL [Concomitant]
     Active Substance: ACETAMINOPHEN

REACTIONS (5)
  - Secretion discharge [None]
  - Recalled product administered [None]
  - Pain [None]
  - Breath odour [None]
  - Product quality issue [None]

NARRATIVE: CASE EVENT DATE: 20201025
